FAERS Safety Report 9688474 (Version 1)
Quarter: 2013Q4

REPORT INFORMATION
  Report Type: Spontaneous
  Country: US (occurrence: None)
  Receive Date: 20131112
  Receipt Date: 20131112
  Transmission Date: 20140711
  Serious: Yes (Hospitalization, Other)
  Sender: FDA-Public Use
  Company Number: 1311-1427

PATIENT
  Age: 86 Year
  Sex: Female

DRUGS (4)
  1. EYELEA (AFLIBERCEPT) (INJECTION) (AFLIBERCEPT) [Suspect]
     Indication: AGE-RELATED MACULAR DEGENERATION
     Dosage: INTRAVITREAL
     Dates: start: 20131024
  2. PRAVACHOL (PRAVASTATIN SODIUM) [Concomitant]
  3. THYROID MEDICATION (THYROID PREPARATIONS) [Concomitant]
  4. FLUID PILL [Concomitant]

REACTIONS (4)
  - Photosensitivity reaction [None]
  - Eye pain [None]
  - Corneal erosion [None]
  - Pulmonary embolism [None]
